FAERS Safety Report 7374686-6 (Version None)
Quarter: 2011Q1

REPORT INFORMATION
  Report Type: 
  Country: None (occurrence: None)
  Receive Date: 20110325
  Receipt Date: 20100721
  Transmission Date: 20110831
  Serious: Yes (Other)
  Sender: FDA-Public Use
  Company Number: US-MYLANLABS-2010S1013271

PATIENT
  Age: 51 Year
  Sex: Female

DRUGS (9)
  1. FENTANYL-100 [Suspect]
     Indication: FIBROMYALGIA
     Dosage: Q3D
     Route: 062
     Dates: end: 20100721
  2. FLUOXETINE [Concomitant]
  3. LISINOPRIL [Concomitant]
  4. CLONAZEPAM [Concomitant]
  5. LIPITOR [Concomitant]
  6. TOPROL-XL [Concomitant]
  7. LANSOPRAZOL [Concomitant]
  8. FENTANYL-100 [Suspect]
     Indication: MIGRAINE
     Dosage: Q3D
     Route: 062
     Dates: end: 20100721
  9. METFORMIN [Concomitant]

REACTIONS (3)
  - MIGRAINE [None]
  - DRUG EFFECT DECREASED [None]
  - FIBROMYALGIA [None]
